FAERS Safety Report 8323006-9 (Version None)
Quarter: 2012Q2

REPORT INFORMATION
  Report Type: 
  Country: None (occurrence: None)
  Receive Date: 20120430
  Receipt Date: 20120416
  Transmission Date: 20120825
  Serious: Yes (Hospitalization, Disabling, Other)
  Sender: FDA-Public Use
  Company Number: US-MYLANLABS-2009AC000184

PATIENT
  Age: 65 Year
  Sex: Female

DRUGS (59)
  1. POTASSIUM CHLORIDE [Concomitant]
  2. METAMUCIL-2 [Concomitant]
  3. IBUPROFEN [Concomitant]
  4. LASIX [Concomitant]
  5. CELEXA [Concomitant]
  6. ENALAPRIL MALEATE [Concomitant]
  7. WARFARIN SODIUM [Concomitant]
  8. ASPIRIN [Concomitant]
  9. OMEPRAZOLE [Concomitant]
  10. NITROGLYCERIN [Concomitant]
  11. AMOXICILLIN [Concomitant]
  12. ALTACE [Concomitant]
  13. ACETAMINOPHEN [Concomitant]
  14. ZOCOR [Concomitant]
  15. CITALOPRAM [Concomitant]
  16. LIPITOR [Concomitant]
  17. AMIODARONE HCL [Concomitant]
  18. PREMARIN [Concomitant]
  19. AGGRENOX [Concomitant]
  20. TRICOR [Concomitant]
  21. XOPENEX [Concomitant]
  22. SULFAMETHOXAZOLE [Concomitant]
  23. ALLEGRA [Concomitant]
  24. ESTRADIOL [Concomitant]
  25. DIGOXIN [Suspect]
     Route: 048
     Dates: start: 20080424
  26. PROZAC [Concomitant]
  27. LEVAQUIN [Concomitant]
  28. PROAIR HFA [Concomitant]
  29. TRAZODONE HCL [Concomitant]
  30. TORADOL [Concomitant]
  31. FUROSEMIDE [Concomitant]
  32. TUSSIN /00048001/ [Concomitant]
  33. DILTIAZEM [Concomitant]
  34. VASOTEC [Concomitant]
  35. ACTOS [Concomitant]
  36. FISH OIL [Concomitant]
  37. MULTI-VITAMIN [Concomitant]
  38. DETROL [Concomitant]
  39. CARVEDILOL [Concomitant]
  40. PREDNISONE [Concomitant]
  41. CYCLOBENZAPRINE [Concomitant]
  42. FLUOXETINE [Concomitant]
  43. COLCHICINE [Concomitant]
  44. BUPROPION HCL [Concomitant]
  45. ZYRTEC [Concomitant]
  46. ALBUTEROL [Concomitant]
  47. ASCENSIA [Concomitant]
  48. PREVACID [Concomitant]
  49. ATROVENT [Concomitant]
  50. AZMACORT [Concomitant]
  51. DIGOXIN [Suspect]
     Route: 048
     Dates: start: 20080428
  52. PRILOSEC [Concomitant]
  53. COREG [Concomitant]
  54. NEXIUM [Concomitant]
  55. HYDROCODONE [Concomitant]
  56. SIMVASTATIN [Concomitant]
  57. CEPHALEXIN [Concomitant]
  58. ADVAIR DISKUS 100/50 [Concomitant]
  59. HYDROCHLOROTHIAZIDE [Concomitant]

REACTIONS (45)
  - ATRIAL FLUTTER [None]
  - EMOTIONAL DISTRESS [None]
  - CONFUSIONAL STATE [None]
  - HYPOXIA [None]
  - ANAEMIA [None]
  - RENAL FAILURE [None]
  - DRUG LEVEL BELOW THERAPEUTIC [None]
  - MYOCARDIAL INFARCTION [None]
  - BLINDNESS [None]
  - HEART RATE INCREASED [None]
  - CARDIOMEGALY [None]
  - NAUSEA [None]
  - ILL-DEFINED DISORDER [None]
  - CHEST PAIN [None]
  - WHEEZING [None]
  - HEART RATE IRREGULAR [None]
  - PYREXIA [None]
  - HYPERHIDROSIS [None]
  - INTERNATIONAL NORMALISED RATIO DECREASED [None]
  - LOSS OF EMPLOYMENT [None]
  - ACTIVITIES OF DAILY LIVING IMPAIRED [None]
  - ASTHENIA [None]
  - PALPITATIONS [None]
  - BLOOD PRESSURE DECREASED [None]
  - DRUG ABUSE [None]
  - ANHEDONIA [None]
  - DEPRESSION [None]
  - AGITATION [None]
  - URINE OUTPUT DECREASED [None]
  - DYSARTHRIA [None]
  - VOMITING [None]
  - ECONOMIC PROBLEM [None]
  - SOCIAL AVOIDANT BEHAVIOUR [None]
  - APHAGIA [None]
  - DYSPNOEA [None]
  - FLAT AFFECT [None]
  - VIITH NERVE PARALYSIS [None]
  - TREATMENT NONCOMPLIANCE [None]
  - TOXICITY TO VARIOUS AGENTS [None]
  - INJURY [None]
  - PAIN [None]
  - SPEECH DISORDER [None]
  - ATRIAL FIBRILLATION [None]
  - DIARRHOEA [None]
  - MOVEMENT DISORDER [None]
